FAERS Safety Report 8289656-3 (Version None)
Quarter: 2012Q2

REPORT INFORMATION
  Report Type: 
  Country: None (occurrence: None)
  Receive Date: 20120417
  Receipt Date: 20120409
  Transmission Date: 20120825
  Serious: Yes (Hospitalization)
  Sender: FDA-Public Use
  Company Number: US-BAYER-201028017NA

PATIENT
  Age: 45 Year
  Sex: Female
  Weight: 81.633 kg

DRUGS (5)
  1. YAZ [Suspect]
     Dosage: UNK
     Route: 048
     Dates: start: 20060601, end: 20080815
  2. VICODIN [Concomitant]
  3. HYDROCODONE BITARTRATE AND ACETAMINOPHEN [Concomitant]
     Dosage: UNK
     Dates: start: 20080428, end: 20101014
  4. IBUPROF [Concomitant]
     Dosage: UNK
     Dates: start: 20000101
  5. ZOLOFT [Concomitant]
     Indication: DEPRESSION
     Dosage: 100 MG, UNK

REACTIONS (4)
  - DEEP VEIN THROMBOSIS [None]
  - DEPRESSION [None]
  - ANXIETY [None]
  - PULMONARY EMBOLISM [None]
